FAERS Safety Report 9375141 (Version 2)
Quarter: 2013Q4

REPORT INFORMATION
  Report Type: Spontaneous
  Country: GB (occurrence: GB)
  Receive Date: 20130628
  Receipt Date: 20131024
  Transmission Date: 20140711
  Serious: Yes (Other)
  Sender: FDA-Public Use
  Company Number: GB-MERCK-1306GBR011028

PATIENT
  Age: 62 Year
  Sex: Female
  Weight: 50 kg

DRUGS (10)
  1. SIMVASTATIN [Suspect]
     Dosage: 80 MG, 1/1DAYS
     Route: 048
  2. AMLODIPINE [Suspect]
     Dosage: 5 MG, QD
  3. CALCIUM (UNSPECIFIED) [Concomitant]
  4. CLONAZEPAM [Concomitant]
  5. COD LIVER OIL [Concomitant]
  6. ERGOCALCIFEROL [Concomitant]
  7. EVENING PRIMROSE OIL [Concomitant]
  8. REMEDEINE [Concomitant]
  9. EZETIMIBE [Concomitant]
     Route: 048
  10. VITAMINS (UNSPECIFIED) [Concomitant]

REACTIONS (3)
  - Peroneal nerve palsy [Not Recovered/Not Resolved]
  - Drug interaction [Unknown]
  - Fall [Not Recovered/Not Resolved]
